FAERS Safety Report 21695560 (Version 1)
Quarter: 2022Q4

REPORT INFORMATION
  Report Type: Report from Study
  Country: CO (occurrence: CO)
  Receive Date: 20221207
  Receipt Date: 20221207
  Transmission Date: 20230112
  Serious: Yes (Hospitalization)
  Sender: FDA-Public Use
  Company Number: CO-ABBVIE-4226086

PATIENT
  Age: 65 Year
  Sex: Female
  Weight: 72 kg

DRUGS (2)
  1. HUMIRA [Suspect]
     Active Substance: ADALIMUMAB
     Indication: Psoriasis
     Route: 058
     Dates: end: 20220816
  2. HUMIRA [Suspect]
     Active Substance: ADALIMUMAB

REACTIONS (8)
  - Pulmonary thrombosis [Recovering/Resolving]
  - Cardiac murmur [Recovering/Resolving]
  - Blood cholesterol abnormal [Recovering/Resolving]
  - Glycosylated haemoglobin abnormal [Recovering/Resolving]
  - Pneumonia [Recovering/Resolving]
  - Blood triglycerides abnormal [Recovering/Resolving]
  - Illness [Recovering/Resolving]
  - Heart rate increased [Recovering/Resolving]

NARRATIVE: CASE EVENT DATE: 20221102
